FAERS Safety Report 8974563 (Version 2)
Quarter: 2013Q1

REPORT INFORMATION
  Report Type: Spontaneous
  Country: US (occurrence: US)
  Receive Date: 20121220
  Receipt Date: 20130109
  Transmission Date: 20140127
  Serious: No
  Sender: FDA-Public Use
  Company Number: US-009507513-1212USA005405

PATIENT
  Age: 55 None
  Sex: Female

DRUGS (4)
  1. VICTRELIS [Suspect]
     Indication: HEPATITIS C
     Dosage: 800 MG, TID
     Route: 048
     Dates: start: 20121210
  2. PEGASYS [Suspect]
     Indication: HEPATITIS C
  3. RIBAPAK [Suspect]
     Indication: HEPATITIS C
  4. LOSARTAN POTASSIUM [Concomitant]

REACTIONS (9)
  - Feeling cold [Unknown]
  - Neck pain [Unknown]
  - Back pain [Unknown]
  - Arthralgia [Unknown]
  - Depressed mood [Unknown]
  - Fatigue [Unknown]
  - Bradyphrenia [Unknown]
  - Chills [Unknown]
  - Dry throat [Unknown]
